FAERS Safety Report 20126167 (Version 1)
Quarter: 2021Q4

REPORT INFORMATION
  Report Type: Spontaneous
  Country: US (occurrence: None)
  Receive Date: 20211127
  Receipt Date: 20211127
  Transmission Date: 20220303
  Serious: Yes (Life-Threatening)
  Sender: FDA-Public Use
  Company Number: None

PATIENT
  Age: 60 Year
  Sex: Female
  Weight: 133.2 kg

DRUGS (8)
  1. PLAVIX [Suspect]
     Active Substance: CLOPIDOGREL BISULFATE
     Indication: Aneurysm
     Dosage: FREQUENCY : DAILY;?
     Route: 048
     Dates: start: 20211117
  2. Metal knee [Concomitant]
  3. GRALISE [Concomitant]
     Active Substance: GABAPENTIN
  4. XANAX [Concomitant]
     Active Substance: ALPRAZOLAM
  5. ALLOPURINOL [Concomitant]
     Active Substance: ALLOPURINOL
  6. VITAMIN D3 [Concomitant]
     Active Substance: CHOLECALCIFEROL
  7. ZYRTEC [Concomitant]
     Active Substance: CETIRIZINE HYDROCHLORIDE
  8. BENADRYL OTC [Concomitant]

REACTIONS (13)
  - Dysphagia [None]
  - Pain in extremity [None]
  - Contusion [None]
  - Flatulence [None]
  - Abdominal distension [None]
  - Duodenal ulcer [None]
  - Ketoacidosis [None]
  - Incoherent [None]
  - Hyponatraemia [None]
  - Diarrhoea [None]
  - Rectal haemorrhage [None]
  - Feeding disorder [None]
  - Nerve injury [None]

NARRATIVE: CASE EVENT DATE: 20211124
